FAERS Safety Report 23353096 (Version 1)
Quarter: 2023Q4

REPORT INFORMATION
  Report Type: Spontaneous
  Country: US (occurrence: US)
  Receive Date: 20231230
  Receipt Date: 20231230
  Transmission Date: 20240109
  Serious: No
  Sender: FDA-Public Use
  Company Number: US-JNJFOC-20231276062

PATIENT
  Sex: Female

DRUGS (10)
  1. TYLENOL REGULAR STRENGTH [Suspect]
     Active Substance: ACETAMINOPHEN
     Indication: Product used for unknown indication
     Dosage: PREGNANCY 1
     Route: 065
     Dates: start: 201401, end: 201407
  2. TYLENOL REGULAR STRENGTH [Suspect]
     Active Substance: ACETAMINOPHEN
     Dosage: PREGNANCY 2
     Route: 065
     Dates: start: 201611, end: 201612
  3. TYLENOL 8HR [Suspect]
     Active Substance: ACETAMINOPHEN
     Indication: Product used for unknown indication
     Dosage: PREGNANCY 1
     Route: 065
     Dates: start: 201401, end: 201407
  4. TYLENOL EXTRA STRENGTH [Suspect]
     Active Substance: ACETAMINOPHEN
     Indication: Product used for unknown indication
     Dosage: PREGNANCY 2
     Route: 065
     Dates: start: 201611, end: 201612
  5. ACETAMINOPHEN [Suspect]
     Active Substance: ACETAMINOPHEN
     Indication: Product used for unknown indication
     Dosage: PREGNANCY 1
     Route: 065
     Dates: start: 201401, end: 201407
  6. ACETAMINOPHEN [Suspect]
     Active Substance: ACETAMINOPHEN
     Dosage: PREGNANCY 2
     Route: 065
     Dates: start: 201611, end: 201612
  7. ACETAMINOPHEN [Suspect]
     Active Substance: ACETAMINOPHEN
     Indication: Product used for unknown indication
     Dosage: PREGNANCY 1
     Route: 065
     Dates: start: 201401, end: 201407
  8. ACETAMINOPHEN [Suspect]
     Active Substance: ACETAMINOPHEN
     Dosage: PREGNANCY 2
     Route: 065
     Dates: start: 201611, end: 201612
  9. ACETAMINOPHEN [Suspect]
     Active Substance: ACETAMINOPHEN
     Indication: Product used for unknown indication
     Dosage: PREGNANCY 1
     Route: 065
     Dates: start: 201401, end: 201407
  10. ACETAMINOPHEN [Suspect]
     Active Substance: ACETAMINOPHEN
     Dosage: PREGNANCY 2
     Route: 065
     Dates: start: 201611, end: 201612

REACTIONS (1)
  - Exposure during pregnancy [Unknown]
